FAERS Safety Report 12413037 (Version 1)
Quarter: 2016Q2

REPORT INFORMATION
  Report Type: Spontaneous
  Country: US (occurrence: US)
  Receive Date: 20160527
  Receipt Date: 20160527
  Transmission Date: 20160815
  Serious: No
  Sender: FDA-Public Use
  Company Number: US-009507513-1605USA000073

PATIENT
  Sex: Female
  Weight: 43.84 kg

DRUGS (1)
  1. NEXPLANON [Suspect]
     Active Substance: ETONOGESTREL
     Indication: CONTRACEPTION
     Dosage: UNSPECIFIED DOSE FOR EVERY 3 YEARS
     Route: 059

REACTIONS (3)
  - Incorrect dose administered [Unknown]
  - Feeling abnormal [Unknown]
  - Dizziness [Unknown]
